FAERS Safety Report 16828806 (Version 1)
Quarter: 2019Q3

REPORT INFORMATION
  Report Type: Spontaneous
  Country: JP (occurrence: JP)
  Receive Date: 20190919
  Receipt Date: 20190919
  Transmission Date: 20191005
  Serious: Yes (Hospitalization)
  Sender: FDA-Public Use
  Company Number: JP-JNJFOC-20190918226

PATIENT
  Age: 84 Year
  Sex: Female

DRUGS (9)
  1. ITOROL [Concomitant]
     Active Substance: ISOSORBIDE MONONITRATE
     Dosage: UNKNOWN
     Route: 065
  2. TRAMCET [Suspect]
     Active Substance: ACETAMINOPHEN\TRAMADOL
     Route: 048
     Dates: start: 20190909, end: 20190909
  3. ARTIST [Concomitant]
     Active Substance: CARVEDILOL
  4. ASPARA K [Concomitant]
     Active Substance: POTASSIUM ASPARTATE
  5. TRAMCET [Suspect]
     Active Substance: ACETAMINOPHEN\TRAMADOL
     Indication: PAIN
     Route: 048
     Dates: start: 20190821, end: 20190823
  6. TRAMCET [Suspect]
     Active Substance: ACETAMINOPHEN\TRAMADOL
     Route: 048
     Dates: start: 20190906, end: 20190906
  7. TRAMCET [Suspect]
     Active Substance: ACETAMINOPHEN\TRAMADOL
     Route: 048
     Dates: start: 20190907, end: 20190908
  8. SIGMART [Concomitant]
     Active Substance: NICORANDIL
     Dosage: UNKNOWN
     Route: 065
  9. XYLOCAINE [Concomitant]
     Active Substance: LIDOCAINE HYDROCHLORIDE
     Dosage: UNKNOWN
     Route: 042
     Dates: start: 20190823, end: 20190823

REACTIONS (7)
  - Vomiting [Recovered/Resolved]
  - Electrocardiogram QT prolonged [Recovered/Resolved]
  - Ventricular fibrillation [Recovered/Resolved]
  - Heat illness [Unknown]
  - Hypokalaemia [Recovered/Resolved]
  - Treatment noncompliance [Unknown]
  - Off label use [Unknown]

NARRATIVE: CASE EVENT DATE: 20190823
